FAERS Safety Report 16248105 (Version 6)
Quarter: 2019Q4

REPORT INFORMATION
  Report Type: Spontaneous
  Country: JP (occurrence: JP)
  Receive Date: 20190428
  Receipt Date: 20191115
  Transmission Date: 20200122
  Serious: Yes (Hospitalization, Other)
  Sender: FDA-Public Use
  Company Number: JP-AMGEN-JPNSP2019066474

PATIENT
  Age: 56 Year
  Sex: Female
  Weight: 42 kg

DRUGS (11)
  1. 5-FU [Suspect]
     Active Substance: FLUOROURACIL
     Dosage: 3400 MILLIGRAM, Q2WK
     Route: 041
     Dates: start: 20190220
  2. VECTIBIX [Suspect]
     Active Substance: PANITUMUMAB
     Dosage: 3.6 MILLIGRAM/KILOGRAM
     Route: 041
  3. ELPLAT [Suspect]
     Active Substance: OXALIPLATIN
     Indication: COLORECTAL CANCER METASTATIC
     Dosage: 120 MILLIGRAM, Q2WEEKS
     Route: 041
     Dates: start: 20190220
  4. ZYPREXA [Concomitant]
     Active Substance: OLANZAPINE
     Dosage: 5 MILLIGRAM, QD
     Route: 048
     Dates: start: 20190220
  5. CALCIUM LEVOFOLINATE [Suspect]
     Active Substance: LEVOLEUCOVORIN CALCIUM
     Indication: COLORECTAL CANCER METASTATIC
     Dosage: 280 MILLIGRAM, Q2WEEKS
     Route: 041
     Dates: start: 20190220
  6. DECADRON [Concomitant]
     Active Substance: DEXAMETHASONE
     Dosage: 4 MILLIGRAM, BID
     Route: 048
     Dates: start: 20190220
  7. MINOMYCIN [Concomitant]
     Active Substance: MINOCYCLINE HYDROCHLORIDE
     Dosage: 50 MILLIGRAM, BID
     Route: 048
     Dates: start: 20190220
  8. VECTIBIX [Suspect]
     Active Substance: PANITUMUMAB
     Indication: COLORECTAL CANCER METASTATIC
     Dosage: 280 MILLIGRAM, Q2WK
     Route: 041
     Dates: start: 20190220
  9. 5-FU [Suspect]
     Active Substance: FLUOROURACIL
     Indication: COLORECTAL CANCER METASTATIC
     Dosage: 580 MILLIGRAM, Q2WK
     Route: 040
     Dates: start: 20190220
  10. NAUZELIN [Concomitant]
     Active Substance: DOMPERIDONE
     Dosage: 5 MILLIGRAM, TID
     Route: 048
     Dates: start: 20190220
  11. ALLEGRA [Concomitant]
     Active Substance: FEXOFENADINE HYDROCHLORIDE
     Dosage: 60 MILLIGRAM, BID
     Route: 048
     Dates: start: 20190220

REACTIONS (8)
  - Acne [Recovering/Resolving]
  - Weight decreased [Unknown]
  - Hypomagnesaemia [Recovered/Resolved]
  - Neutrophil count decreased [Recovering/Resolving]
  - Pain of skin [Recovering/Resolving]
  - Decreased appetite [Unknown]
  - Cholangitis [Recovered/Resolved]
  - Dyspnoea [Unknown]

NARRATIVE: CASE EVENT DATE: 201904
